FAERS Safety Report 20619190 (Version 1)
Quarter: 2022Q1

REPORT INFORMATION
  Report Type: Spontaneous
  Country: RS (occurrence: RS)
  Receive Date: 20220322
  Receipt Date: 20220322
  Transmission Date: 20220423
  Serious: Yes (Death, Hospitalization, Other)
  Sender: FDA-Public Use
  Company Number: RS-NOVARTISPH-NVSC2022RS063217

PATIENT
  Sex: Female

DRUGS (12)
  1. BISOPROLOL [Suspect]
     Active Substance: BISOPROLOL
     Indication: Product used for unknown indication
     Dosage: 2.5 UNK, BID ( (1X1)
     Route: 065
  2. ERYTHROPOIETIN [Suspect]
     Active Substance: ERYTHROPOIETIN
     Indication: Product used for unknown indication
     Dosage: UNK
     Route: 065
  3. ROCALTROL [Concomitant]
     Active Substance: CALCITRIOL
     Indication: Product used for unknown indication
     Dosage: 0.5 UG
     Route: 065
  4. CALCIUM CARBONATE [Concomitant]
     Active Substance: CALCIUM CARBONATE
     Indication: Product used for unknown indication
     Dosage: 1 G (1+2+2)
     Route: 065
  5. RAMIPRIL [Concomitant]
     Active Substance: RAMIPRIL
     Indication: Product used for unknown indication
     Dosage: 5 MG (2X1)
     Route: 065
  6. AMLODIPINE [Concomitant]
     Active Substance: AMLODIPINE BESYLATE
     Indication: Product used for unknown indication
     Dosage: 10 MG, PRN (0+1+AS NEEDED)
     Route: 065
  7. LASIX [Concomitant]
     Active Substance: FUROSEMIDE
     Indication: Product used for unknown indication
     Dosage: UNK (1X2)
     Route: 065
  8. DILCORAN [Concomitant]
     Indication: Product used for unknown indication
     Dosage: 80 MG, BID (1+1+0)
     Route: 065
  9. ATENOLOL\NIFEDIPINE [Concomitant]
     Active Substance: ATENOLOL\NIFEDIPINE
     Indication: Product used for unknown indication
     Dosage: 20 MG, PRN (1X 1/2 AS NEEDED)
     Route: 065
  10. ASPIRIN [Concomitant]
     Active Substance: ASPIRIN
     Indication: Product used for unknown indication
     Dosage: 75 MG (1X1 EVERY OTHER DAY)
     Route: 065
  11. ATORVASTATIN CALCIUM [Concomitant]
     Active Substance: ATORVASTATIN CALCIUM
     Indication: Product used for unknown indication
     Dosage: 10 MG (0+1+1)
     Route: 065
  12. NITROGLYCERIN [Concomitant]
     Active Substance: NITROGLYCERIN
     Indication: Product used for unknown indication
     Dosage: UNK, PRN (AS NEEDED)
     Route: 065

REACTIONS (12)
  - Respiratory tract infection [Fatal]
  - Respiratory arrest [Fatal]
  - Chronic obstructive pulmonary disease [Fatal]
  - Dyspnoea [Recovering/Resolving]
  - Sinus tachycardia [Unknown]
  - Cor pulmonale chronic [Unknown]
  - Pulmonary oedema [Unknown]
  - Myocardial ischaemia [Unknown]
  - Hypertensive crisis [Unknown]
  - Hypotension [Unknown]
  - Left ventricular hypertrophy [Unknown]
  - Hypervolaemia [Unknown]
